FAERS Safety Report 12967270 (Version 1)
Quarter: 2016Q4

REPORT INFORMATION
  Report Type: Spontaneous
  Country: US (occurrence: US)
  Receive Date: 20161123
  Receipt Date: 20161123
  Transmission Date: 20170207
  Serious: Yes (Other)
  Sender: FDA-Public Use
  Company Number: US-ALVOGEN-2015-ALVOGEN-020698

PATIENT
  Age: 72 Year
  Sex: Female
  Weight: 58.19 kg

DRUGS (8)
  1. LISINOPRIL. [Suspect]
     Active Substance: LISINOPRIL
     Indication: HYPERTENSION
     Route: 048
  2. PREDNISONE. [Concomitant]
     Active Substance: PREDNISONE
     Indication: PRODUCT USED FOR UNKNOWN INDICATION
     Dosage: 4 TABLETS FOR 4 DAYS THEN 2 TABLETS FOR 3 DAYS, 1 TAB FOR ONE DAY
     Dates: start: 201512
  3. LEVOFLOXACIN. [Concomitant]
     Active Substance: LEVOFLOXACIN
     Indication: SINUSITIS
     Dosage: IN THE EVENING 5 PILLS
  4. SINGULAIR [Concomitant]
     Active Substance: MONTELUKAST SODIUM
     Indication: PRODUCT USED FOR UNKNOWN INDICATION
     Dosage: AT BED TIME
  5. COMBIVENT [Concomitant]
     Active Substance: ALBUTEROL SULFATE\IPRATROPIUM BROMIDE
     Indication: PRODUCT USED FOR UNKNOWN INDICATION
  6. AMLODIPINE [Concomitant]
     Active Substance: AMLODIPINE BESYLATE
     Indication: BLOOD PRESSURE ABNORMAL
  7. SYMBICORT [Concomitant]
     Active Substance: BUDESONIDE\FORMOTEROL FUMARATE DIHYDRATE
     Indication: CHRONIC OBSTRUCTIVE PULMONARY DISEASE
     Dosage: TWO PUFFS
  8. WATER. [Concomitant]
     Active Substance: WATER
     Indication: PRODUCT USED FOR UNKNOWN INDICATION

REACTIONS (2)
  - Peripheral swelling [Unknown]
  - Swollen tongue [Unknown]

NARRATIVE: CASE EVENT DATE: 20151207
